FAERS Safety Report 10035668 (Version 1)
Quarter: 2014Q1

REPORT INFORMATION
  Report Type: Spontaneous
  Country: US (occurrence: None)
  Receive Date: 20140306
  Receipt Date: 20140306
  Transmission Date: 20141002
  Serious: Yes (Hospitalization)
  Sender: FDA-Public Use
  Company Number: 163-21880-12123239

PATIENT
  Age: 78 Year
  Sex: Male
  Weight: 86.18 kg

DRUGS (12)
  1. REVLIMID [Suspect]
     Indication: PLASMA CELL MYELOMA
     Route: 048
     Dates: start: 20120901
  2. FLAGYL (METRONIDAZOLE) [Concomitant]
  3. ALLOPURINOL (ALLOPURINOL) [Concomitant]
  4. ASPIRIN BUFFERED (ACETYLSALICYLIC ACID) [Concomitant]
  5. CEPHALEXIN (CEPHALEXIN) (CAPSULES) [Concomitant]
  6. FUROSEMIDE (FUROSEMIDE) (TABLETS) [Concomitant]
  7. METOPROLOL SUCCINATE (METOPROLOL SUCCINATE) [Concomitant]
  8. MIRALAX (MACROGOL) (TABLETS) [Concomitant]
  9. MORPHINE SULFATE (MORPHINE SULFATE) INJECTION [Concomitant]
  10. MULTIVITAMINS (MULTIVITAMINS) (CAPSULES) [Concomitant]
  11. OCUVITE (OCUVITE) (CAPSULES) [Concomitant]
  12. ONDANSETRON HCL (ONDANSETRON HYDROCHLORIDE) (CAPSULES) [Concomitant]

REACTIONS (3)
  - Blood pressure decreased [None]
  - Full blood count decreased [None]
  - Malaise [None]
